FAERS Safety Report 21648942 (Version 1)
Quarter: 2022Q4

REPORT INFORMATION
  Report Type: Spontaneous
  Country: US (occurrence: None)
  Receive Date: 20221123
  Receipt Date: 20221123
  Transmission Date: 20230113
  Serious: No
  Sender: FDA-Public Use
  Company Number: None

PATIENT
  Age: 68 Year
  Sex: Female
  Weight: 82.55 kg

DRUGS (13)
  1. LENALIDOMIDE [Suspect]
     Active Substance: LENALIDOMIDE
     Indication: Plasma cell myeloma
     Dosage: OTHER FREQUENCY : 3W ON 1W OFF;?
     Route: 048
  2. AMBIEN [Concomitant]
     Active Substance: ZOLPIDEM TARTRATE
  3. ASPIRIN [Concomitant]
     Active Substance: ASPIRIN
  4. LEVOTHYROXINE [Concomitant]
     Active Substance: LEVOTHYROXINE
  5. LISINOPRIL [Concomitant]
     Active Substance: LISINOPRIL
  6. METRONIDAZOLE [Concomitant]
     Active Substance: METRONIDAZOLE
  7. VITAMINS [Concomitant]
     Active Substance: VITAMINS
  8. NIFEDIPINE [Concomitant]
     Active Substance: NIFEDIPINE
  9. PRAVASTATIN [Concomitant]
     Active Substance: PRAVASTATIN
  10. QUETIAPINE [Concomitant]
     Active Substance: QUETIAPINE
  11. TYLENOL [Concomitant]
     Active Substance: ACETAMINOPHEN
  12. VALACYCLOVIR [Concomitant]
     Active Substance: VALACYCLOVIR HYDROCHLORIDE
  13. VITAMIN D [Concomitant]
     Active Substance: VITAMIN D NOS

REACTIONS (2)
  - Constipation [None]
  - Anaemia [None]
